FAERS Safety Report 9595076 (Version 1)
Quarter: 2013Q4

REPORT INFORMATION
  Report Type: Spontaneous
  Country: US (occurrence: US)
  Receive Date: 20131004
  Receipt Date: 20131004
  Transmission Date: 20140711
  Serious: No
  Sender: FDA-Public Use
  Company Number: US-PURDUE-USA-2012-0093683

PATIENT
  Age: 66 Year
  Sex: Male

DRUGS (2)
  1. BUTRANS [Suspect]
     Indication: BURSITIS
     Dosage: 20 MCG, 1/WEEK
     Route: 062
     Dates: start: 20120901
  2. BUTRANS [Suspect]
     Indication: AUTOIMMUNE DISORDER

REACTIONS (2)
  - Drug effect decreased [Not Recovered/Not Resolved]
  - Product adhesion issue [Not Recovered/Not Resolved]
